FAERS Safety Report 8388143-1 (Version None)
Quarter: 2012Q2

REPORT INFORMATION
  Report Type: 
  Country: None (occurrence: None)
  Receive Date: 20120525
  Receipt Date: 20120521
  Transmission Date: 20120825
  Serious: Yes (Other)
  Sender: FDA-Public Use
  Company Number: JP-EISAI INC-E2020-10826-SPO-JP

PATIENT
  Sex: Female

DRUGS (1)
  1. ARICEPT [Suspect]
     Route: 048

REACTIONS (2)
  - DISSEMINATED INTRAVASCULAR COAGULATION [None]
  - DEHYDRATION [None]
